FAERS Safety Report 7060768-5 (Version None)
Quarter: 2010Q4

REPORT INFORMATION
  Report Type: 
  Country: None (occurrence: None)
  Receive Date: 20101025
  Receipt Date: 20101018
  Transmission Date: 20110411
  Serious: Yes (Other)
  Sender: FDA-Public Use
  Company Number: IT-BAXTER-2010BH026220

PATIENT

DRUGS (5)
  1. CYCLOPHOSPHAMIDE [Suspect]
     Indication: PROSTATE CANCER
     Route: 048
  2. CYCLOPHOSPHAMIDE [Suspect]
     Indication: OFF LABEL USE
     Route: 048
  3. DOCETAXEL [Suspect]
     Indication: PROSTATE CANCER
     Route: 042
  4. PREDNISONE [Suspect]
     Indication: PROSTATE CANCER
     Route: 048
  5. CELECOXIB [Suspect]
     Indication: PROSTATE CANCER
     Route: 048

REACTIONS (6)
  - DIARRHOEA [None]
  - DYSPNOEA [None]
  - OEDEMA PERIPHERAL [None]
  - ONYCHOLYSIS [None]
  - STOMATITIS [None]
  - THROMBOCYTOPENIA [None]
